FAERS Safety Report 24707742 (Version 1)
Quarter: 2024Q4

REPORT INFORMATION
  Report Type: Spontaneous
  Country: US (occurrence: None)
  Receive Date: 20241206
  Receipt Date: 20241206
  Transmission Date: 20250115
  Serious: Yes (Disabling)
  Sender: Public
  Company Number: None

PATIENT
  Age: 41 Year
  Sex: Female
  Weight: 94.95 kg

DRUGS (6)
  1. WEGOVY [Suspect]
     Active Substance: SEMAGLUTIDE
     Indication: Weight decreased
     Dosage: OTHER QUANTITY : 4 INJECTION(S)?OTHER FREQUENCY : WEEKLY?OTHER ROUTE : INJECTED INTO A ?
     Route: 050
     Dates: start: 20240920, end: 20241022
  2. Tyrvaya (dry eyes) [Concomitant]
  3. LAMISIL [Concomitant]
     Active Substance: TERBINAFINE HYDROCHLORIDE
  4. VITAMIN D3 [Concomitant]
     Active Substance: CHOLECALCIFEROL
  5. PROBIOTICS NOS [Concomitant]
     Active Substance: PROBIOTICS NOS
  6. Macuhealth [Concomitant]

REACTIONS (11)
  - Chest pain [None]
  - Neck pain [None]
  - Lethargy [None]
  - Insomnia [None]
  - Dyspnoea [None]
  - Dysphagia [None]
  - Swelling [None]
  - Thyroid mass [None]
  - Biopsy thyroid gland [None]
  - Thyroid mass [None]
  - Therapy cessation [None]

NARRATIVE: CASE EVENT DATE: 20241020
